FAERS Safety Report 10184710 (Version 1)
Quarter: 2014Q2

REPORT INFORMATION
  Report Type: Spontaneous
  Country: US (occurrence: None)
  Receive Date: 20140519
  Receipt Date: 20140519
  Transmission Date: 20141212
  Serious: Yes (Other)
  Sender: FDA-Public Use
  Company Number: 2336546

PATIENT
  Age: 32 Year
  Sex: Female

DRUGS (5)
  1. CYTARABINE [Suspect]
     Indication: ACUTE MYELOID LEUKAEMIA
  2. DAUNORUBICIN [Suspect]
     Indication: ACUTE MYELOID LEUKAEMIA
  3. LEVAQUIN [Concomitant]
  4. ACYCLOVIR [Concomitant]
  5. POSACONAZOLE [Concomitant]

REACTIONS (9)
  - Systemic inflammatory response syndrome [None]
  - Neutropenia [None]
  - Contusion [None]
  - Fatigue [None]
  - Bone pain [None]
  - Menorrhagia [None]
  - Erythema [None]
  - Tenderness [None]
  - Pilonidal cyst [None]
